FAERS Safety Report 20741451 (Version 2)
Quarter: 2023Q1

REPORT INFORMATION
  Report Type: Spontaneous
  Country: US (occurrence: US)
  Receive Date: 20220422
  Receipt Date: 20230322
  Transmission Date: 20230417
  Serious: No
  Sender: FDA-Public Use
  Company Number: US-PFIZER INC-2019291641

PATIENT
  Age: 51 Year
  Sex: Female

DRUGS (1)
  1. CHANTIX [Suspect]
     Active Substance: VARENICLINE TARTRATE
     Dosage: 1 MG, [QUANTITY FOR 90 DAYS: 3 BOXES (168 TABS)/ SIG: TAKE AS DIRECTED]

REACTIONS (2)
  - Loss of personal independence in daily activities [Unknown]
  - Product prescribing error [Unknown]
